FAERS Safety Report 10241304 (Version 2)
Quarter: 2014Q3

REPORT INFORMATION
  Report Type: Spontaneous
  Country: US (occurrence: US)
  Receive Date: 20140617
  Receipt Date: 20140703
  Transmission Date: 20150326
  Serious: Yes (Hospitalization, Disabling, Other)
  Sender: FDA-Public Use
  Company Number: US-ROCHE-1419498

PATIENT
  Age: 59 Year
  Sex: Female
  Weight: 76.27 kg

DRUGS (2)
  1. AVASTIN [Suspect]
     Active Substance: BEVACIZUMAB
     Indication: NON-SMALL CELL LUNG CANCER STAGE IV
     Route: 042
     Dates: start: 20120829, end: 20140513
  2. ALIMTA [Concomitant]
     Active Substance: PEMETREXED DISODIUM
     Indication: LUNG NEOPLASM MALIGNANT
     Route: 042
     Dates: start: 20120829, end: 20140303

REACTIONS (8)
  - Blood creatinine increased [Not Recovered/Not Resolved]
  - Renal failure acute [Unknown]
  - Fluid retention [Unknown]
  - Ascites [Unknown]
  - Oedema peripheral [Unknown]
  - Renal failure [Unknown]
  - Pulmonary hypertension [Not Recovered/Not Resolved]
  - Pulmonary oedema [Unknown]

NARRATIVE: CASE EVENT DATE: 20140324
